FAERS Safety Report 6613675-3 (Version None)
Quarter: 2010Q1

REPORT INFORMATION
  Report Type: 
  Country: None (occurrence: None)
  Receive Date: 20100304
  Receipt Date: 20100225
  Transmission Date: 20100710
  Serious: Yes (Hospitalization)
  Sender: FDA-Public Use
  Company Number: NL-ROCHE-687916

PATIENT

DRUGS (4)
  1. CAPECITABINE [Suspect]
     Indication: GASTRIC CANCER
     Dosage: LAST DOSE PRIOR TO SAE: 25 JAN 2010
     Route: 065
     Dates: start: 20100125
  2. CISPLATIN [Suspect]
     Indication: GASTRIC CANCER
     Dosage: LAST DOSE PRIOR TO SAE: 25 JAN 2010
     Route: 065
     Dates: start: 20100125
  3. EPIRUBICIN [Suspect]
     Indication: GASTRIC CANCER
     Dosage: LAST DOSE PRIOR TO SAE: 25 JAN 2010
     Route: 065
     Dates: start: 20100125
  4. NEXIUM [Concomitant]
     Dosage: NEXIUM 2DD40 MG
     Route: 048

REACTIONS (1)
  - GASTRIC PERFORATION [None]
